FAERS Safety Report 14475395 (Version 3)
Quarter: 2018Q1

REPORT INFORMATION
  Report Type: Spontaneous
  Country: GR (occurrence: GR)
  Receive Date: 20180201
  Receipt Date: 20180322
  Transmission Date: 20180509
  Serious: Yes (Life-Threatening, Hospitalization)
  Sender: FDA-Public Use
  Company Number: GR-ALLERGAN-1804920US

PATIENT
  Age: 67 Year
  Sex: Female

DRUGS (3)
  1. METHYLENE BLUE. [Interacting]
     Active Substance: METHYLENE BLUE
     Indication: SURGERY
     Dosage: 5 MG/KG, UNK
     Route: 042
  2. ESCITALOPRAM OXALATE - BP [Suspect]
     Active Substance: ESCITALOPRAM OXALATE
     Indication: DEPRESSION
     Route: 065
  3. METHYLENE BLUE. [Interacting]
     Active Substance: METHYLENE BLUE
     Indication: DIAGNOSTIC PROCEDURE
     Dosage: 5 MG/KG, UNK
     Route: 042

REACTIONS (15)
  - Fear [Not Recovered/Not Resolved]
  - Anxiety [Not Recovered/Not Resolved]
  - Agitation [Not Recovered/Not Resolved]
  - Psychomotor hyperactivity [Unknown]
  - Delayed recovery from anaesthesia [Unknown]
  - Hyperreflexia [Recovered/Resolved]
  - Confusional state [Not Recovered/Not Resolved]
  - Mental status changes [Unknown]
  - Drug interaction [Unknown]
  - Disorientation [Not Recovered/Not Resolved]
  - Clonus [Recovered/Resolved]
  - Mydriasis [Unknown]
  - Serotonin syndrome [Recovered/Resolved]
  - Muscle rigidity [Unknown]
  - Hyperpyrexia [Unknown]
